FAERS Safety Report 17238311 (Version 3)
Quarter: 2020Q3

REPORT INFORMATION
  Report Type: Spontaneous
  Country: ES (occurrence: ES)
  Receive Date: 20200106
  Receipt Date: 20200731
  Transmission Date: 20201102
  Serious: Yes (Other)
  Sender: FDA-Public Use
  Company Number: ES-SAMSUNG BIOEPIS-SB-2019-40427

PATIENT
  Age: 53 Year
  Sex: Male

DRUGS (6)
  1. ADALIMUMAB [Suspect]
     Active Substance: ADALIMUMAB
     Route: 058
     Dates: start: 2016
  2. ETANERCEPT [Suspect]
     Active Substance: ETANERCEPT
     Indication: PSORIASIS
     Route: 058
     Dates: start: 2008
  3. ADALIMUMAB [Suspect]
     Active Substance: ADALIMUMAB
     Indication: PSORIASIS
     Route: 058
  4. ACITRETIN. [Concomitant]
     Active Substance: ACITRETIN
     Indication: PSORIASIS
     Dosage: UNKNOWN
     Route: 065
  5. ETANERCEPT [Suspect]
     Active Substance: ETANERCEPT
     Dosage: AFTER THREE MONTH
     Route: 058
     Dates: start: 2008, end: 2016
  6. CICLOSPORIN [Concomitant]
     Active Substance: CYCLOSPORINE
     Indication: PSORIASIS
     Dosage: UNKNOWN
     Route: 065

REACTIONS (2)
  - Therapeutic product effect decreased [Unknown]
  - Kaposi^s sarcoma [Recovered/Resolved]
